FAERS Safety Report 6197139-X (Version None)
Quarter: 2009Q2

REPORT INFORMATION
  Report Type: 
  Country: None (occurrence: None)
  Receive Date: 20090518
  Receipt Date: 20090518
  Transmission Date: 20091009
  Serious: No
  Sender: FDA-Public Use
  Company Number: None

PATIENT
  Age: 39 Year
  Sex: Female
  Weight: 117.9352 kg

DRUGS (1)
  1. CHANTIX [Suspect]
     Indication: SMOKING CESSATION THERAPY
     Dosage: .5 MG AS STARTER DOSE- 2MG END DAILY PO
     Route: 048
     Dates: start: 20090330, end: 20090418

REACTIONS (9)
  - ABNORMAL DREAMS [None]
  - ARTHRALGIA [None]
  - DYSGEUSIA [None]
  - FEELING ABNORMAL [None]
  - PAROSMIA [None]
  - RASH PRURITIC [None]
  - SKIN DISORDER [None]
  - SKIN WARM [None]
  - SWELLING FACE [None]
